FAERS Safety Report 5022163-X (Version None)
Quarter: 2006Q2

REPORT INFORMATION
  Report Type: 
  Country: None (occurrence: None)
  Receive Date: 20060609
  Receipt Date: 20060512
  Transmission Date: 20061013
  Serious: Yes (Hospitalization, Other)
  Sender: FDA-Public Use
  Company Number: US-AMGEN-US179470

PATIENT
  Sex: Female

DRUGS (17)
  1. PROCRIT [Suspect]
     Indication: ANAEMIA
     Route: 058
     Dates: start: 20030101, end: 20060410
  2. CISAPRIDE [Concomitant]
  3. CALCITRIOL [Concomitant]
     Route: 048
  4. CELLCEPT [Concomitant]
  5. COUMADIN [Concomitant]
  6. FOLATE SODIUM [Concomitant]
  7. PLAQUENIL [Concomitant]
  8. NEXIUM [Concomitant]
  9. NORTRIPTYLINE HCL [Concomitant]
     Route: 048
  10. PREDNISONE [Concomitant]
  11. BACTRIM [Concomitant]
  12. TUMS [Concomitant]
  13. VYTORIN [Concomitant]
  14. ZELNORM [Concomitant]
  15. ZOLOFT [Concomitant]
  16. ZONEGRAN [Concomitant]
  17. ZOFRAN [Concomitant]

REACTIONS (7)
  - APLASIA PURE RED CELL [None]
  - ERYTHEMA INFECTIOSUM [None]
  - HAEMOLYSIS [None]
  - INJECTION SITE PAIN [None]
  - PYREXIA [None]
  - SPLENOMEGALY [None]
  - UPPER RESPIRATORY TRACT INFECTION [None]
